FAERS Safety Report 17608581 (Version 1)
Quarter: 2020Q2

REPORT INFORMATION
  Report Type: Spontaneous
  Country: US (occurrence: US)
  Receive Date: 20200401
  Receipt Date: 20200401
  Transmission Date: 20200713
  Serious: Yes (Other)
  Sender: FDA-Public Use
  Company Number: US-009507513-2003USA009546

PATIENT
  Age: 90 Year
  Sex: Female

DRUGS (1)
  1. ZETIA [Suspect]
     Active Substance: EZETIMIBE
     Dosage: 10 MG, AT NIGHT PRIOR TO BED FOR OVER 3 YEARS
     Route: 048

REACTIONS (1)
  - Angioedema [Recovering/Resolving]
